FAERS Safety Report 6718446-5 (Version None)
Quarter: 2010Q2

REPORT INFORMATION
  Report Type: 
  Country: None (occurrence: None)
  Receive Date: 20100510
  Receipt Date: 20100503
  Transmission Date: 20101027
  Serious: Yes (Hospitalization)
  Sender: FDA-Public Use
  Company Number: US-ABBOTT-10P-163-0642381-00

PATIENT
  Sex: Male

DRUGS (2)
  1. HUMIRA [Suspect]
     Indication: RHEUMATOID ARTHRITIS
  2. UNKNOWN HEART MEDICATION (NON-ABBOTT) [Suspect]
     Indication: MYOCARDIAL INFARCTION
     Dates: start: 20100401

REACTIONS (2)
  - ILL-DEFINED DISORDER [None]
  - MYOCARDIAL INFARCTION [None]
